FAERS Safety Report 8816476 (Version 1)
Quarter: 2012Q4

REPORT INFORMATION
  Report Type: Spontaneous
  Country: US (occurrence: None)
  Receive Date: 20120927
  Receipt Date: 20120927
  Transmission Date: 20130627
  Serious: Yes (Death)
  Sender: FDA-Public Use
  Company Number: DSA_59817_2012

PATIENT
  Sex: Male

DRUGS (9)
  1. XENAZINE 25 MG (NOT SPECIFIED) [Suspect]
     Indication: HUNTINGTON^S DISEASE
     Route: 048
  2. BENZTROPINE [Concomitant]
  3. OMEPRAZOLE [Concomitant]
  4. ARICEPT [Concomitant]
  5. CLONAZEPAM [Concomitant]
  6. CITALOPRAM [Concomitant]
  7. ALPRAZOLAM [Concomitant]
  8. HALOPERIDOL [Concomitant]
  9. NAMENDA [Concomitant]

REACTIONS (1)
  - Death [None]
